FAERS Safety Report 19071676 (Version 2)
Quarter: 2021Q2

REPORT INFORMATION
  Report Type: Spontaneous
  Country: US (occurrence: US)
  Receive Date: 20210330
  Receipt Date: 20210423
  Transmission Date: 20210717
  Serious: No
  Sender: FDA-Public Use
  Company Number: US-ASTRAZENECA-2021A158103

PATIENT
  Sex: Male
  Weight: 138.8 kg

DRUGS (2)
  1. BYDUREON [Suspect]
     Active Substance: EXENATIDE
     Indication: DIABETES MELLITUS
     Route: 058
     Dates: end: 202102
  2. BYDUREON BCISE [Suspect]
     Active Substance: EXENATIDE
     Indication: DIABETES MELLITUS
     Route: 058
     Dates: start: 202102

REACTIONS (7)
  - Device delivery system issue [Unknown]
  - Needle issue [Unknown]
  - Intentional device misuse [Unknown]
  - Injection site mass [Unknown]
  - Skin laceration [Unknown]
  - Injection site haemorrhage [Unknown]
  - Device leakage [Unknown]
